FAERS Safety Report 9483888 (Version 3)
Quarter: 2013Q3

REPORT INFORMATION
  Report Type: Spontaneous
  Country: JP (occurrence: JP)
  Receive Date: 20130828
  Receipt Date: 20130906
  Transmission Date: 20140515
  Serious: Yes (Death)
  Sender: FDA-Public Use
  Company Number: JP-ELI_LILLY_AND_COMPANY-JP201308003382

PATIENT
  Age: 83 Year
  Sex: Male

DRUGS (6)
  1. ZYPREXA [Suspect]
     Indication: DEMENTIA ALZHEIMER^S TYPE
     Dosage: 2.5 MG, UNK
     Route: 048
     Dates: start: 20130729, end: 20130802
  2. TIALAREAD [Suspect]
     Indication: RESTLESSNESS
     Dosage: 25 MG, QD
     Route: 048
     Dates: start: 20130708, end: 20130801
  3. SERENACE [Suspect]
     Indication: RESTLESSNESS
     Dosage: UNK, PRN
     Route: 030
     Dates: start: 20130729, end: 20130801
  4. SEROQUEL [Suspect]
     Indication: RESTLESSNESS
     Dosage: 25 MG, QD
     Route: 048
     Dates: start: 20130624, end: 20130801
  5. AKINETON [Suspect]
     Indication: RESTLESSNESS
     Dosage: 5 MG, QD
     Route: 030
     Dates: start: 20130729, end: 20130801
  6. CERCINE [Suspect]
     Indication: RESTLESSNESS
     Dosage: 5 MG, QD
     Route: 042
     Dates: start: 20130802, end: 20130802

REACTIONS (3)
  - Pneumonia aspiration [Fatal]
  - Off label use [Recovered/Resolved]
  - Wrong technique in drug usage process [Recovered/Resolved]
